FAERS Safety Report 12636997 (Version 1)
Quarter: 2016Q3

REPORT INFORMATION
  Report Type: Spontaneous
  Country: AR (occurrence: AR)
  Receive Date: 20160809
  Receipt Date: 20160809
  Transmission Date: 20161109
  Serious: Yes (Hospitalization, Other)
  Sender: FDA-Public Use
  Company Number: AR-FRESENIUS KABI-FK201604963

PATIENT
  Age: 22 Year
  Sex: Male

DRUGS (4)
  1. COLISTIMETHATE (MANUFACTURER UNKNOWN) [Suspect]
     Active Substance: COLISTIMETHATE SODIUM
     Indication: BRAIN ABSCESS
     Route: 065
  2. PHENYTOIN. [Suspect]
     Active Substance: PHENYTOIN
     Indication: PROPHYLAXIS
     Route: 065
  3. VANCOMYCIN (MANUFACTURER UNKNOWN) [Suspect]
     Active Substance: VANCOMYCIN
     Indication: BRAIN ABSCESS
     Route: 065
  4. MEROPENEM (MANUFACTURER UNKNOWN) [Suspect]
     Active Substance: MEROPENEM
     Indication: BRAIN ABSCESS
     Route: 065

REACTIONS (2)
  - Stevens-Johnson syndrome [Recovered/Resolved]
  - Obliterative bronchiolitis [Recovered/Resolved with Sequelae]
